FAERS Safety Report 25987343 (Version 1)
Quarter: 2025Q4

REPORT INFORMATION
  Report Type: Spontaneous
  Country: GB (occurrence: GB)
  Receive Date: 20251103
  Receipt Date: 20251103
  Transmission Date: 20260117
  Serious: No
  Sender: ALKEM
  Company Number: None

PATIENT
  Age: 44 Year
  Sex: Female
  Weight: 73 kg

DRUGS (5)
  1. IBUPROFEN [Suspect]
     Active Substance: IBUPROFEN
     Indication: Ill-defined disorder
     Dosage: UNK (200MG/5ML ORAL SUSPENSION)
     Route: 065
     Dates: start: 20220207
  2. Contour plus [Concomitant]
     Indication: Product used for unknown indication
     Dosage: UNK
     Route: 065
  3. Microlet [Concomitant]
     Indication: Product used for unknown indication
     Dosage: UNK
     Route: 065
  4. Sharpsafe [Concomitant]
     Indication: Product used for unknown indication
     Dosage: UNK
     Route: 065
  5. METFORMIN HYDROCHLORIDE [Concomitant]
     Active Substance: METFORMIN HYDROCHLORIDE
     Indication: Product used for unknown indication
     Dosage: UNK
     Route: 065

REACTIONS (1)
  - Swelling [Recovered/Resolved]
